FAERS Safety Report 11824606 (Version 1)
Quarter: 2015Q4

REPORT INFORMATION
  Report Type: Report from Study
  Country: CA (occurrence: CA)
  Receive Date: 20151210
  Receipt Date: 20151210
  Transmission Date: 20160305
  Serious: Yes (Hospitalization)
  Sender: FDA-Public Use
  Company Number: CA-KADMON PHARMACEUTICALS, LLC-KAD201512-004336

PATIENT
  Sex: Male
  Weight: 107 kg

DRUGS (14)
  1. EURO-CAL [Concomitant]
     Dosage: TABLET
  2. ONEALFA [Concomitant]
     Active Substance: ALFACALCIDOL
     Dosage: CAPSULE
     Route: 048
  3. ZAXINE [Concomitant]
     Active Substance: RIFAXIMIN
     Dosage: TABLET
     Route: 048
  4. DILAUDID [Concomitant]
     Active Substance: HYDROMORPHONE HYDROCHLORIDE
     Dosage: TABLET
     Route: 048
  5. APO-QUININE [Concomitant]
     Active Substance: QUININE
     Dosage: 1 CAPSULE DAILY, EVENING; SUNDAY, MONDAY, WEDNESDAY, FRIDAY, 200 MG
     Route: 048
  6. HYDROMORPH CONTIN [Concomitant]
     Active Substance: HYDROMORPHONE
     Dosage: CAPSULE
  7. HOLKIRA PAK [Suspect]
     Active Substance: DASABUVIR\OMBITASVIR\PARITAPREVIR\RITONAVIR
     Indication: HEPATITIS C
     Dosage: TABLET, 2 OMBITASVIR/PARITAPREVIR/RITONAVIR 12.5/75/50 TAB QD/1 DASABUVIR 250 BID
     Route: 048
     Dates: start: 20151015
  8. VENTOLIN [Concomitant]
     Active Substance: ALBUTEROL SULFATE
     Dosage: 2-4 INHALATIONS AS NEEDED
  9. ATIVAN [Concomitant]
     Active Substance: LORAZEPAM
     Dosage: TABLET
     Route: 048
  10. LANSOPRAZOLE. [Concomitant]
     Active Substance: LANSOPRAZOLE
     Dosage: CAPSULE
     Route: 048
  11. ATIVAN [Concomitant]
     Active Substance: LORAZEPAM
     Dosage: TABLET
     Route: 048
  12. RIBAVIRIN 200 MG TABLETS [Suspect]
     Active Substance: RIBAVIRIN
     Indication: HEPATITIS C
     Route: 048
     Dates: start: 20151015
  13. SYNTHROID [Concomitant]
     Active Substance: LEVOTHYROXINE SODIUM
     Dosage: TABLET
     Route: 048
  14. LASIX SPECIAL [Concomitant]
     Dosage: TABLET, (0.5 TABLET TWICE DAILY)

REACTIONS (2)
  - Urinary tract infection [Unknown]
  - General physical health deterioration [Unknown]
